FAERS Safety Report 11528818 (Version 3)
Quarter: 2015Q4

REPORT INFORMATION
  Report Type: Spontaneous
  Country: US (occurrence: US)
  Receive Date: 20150921
  Receipt Date: 20151023
  Transmission Date: 20160304
  Serious: No
  Sender: FDA-Public Use
  Company Number: US-PFIZER INC-2015296816

PATIENT
  Age: 44 Year
  Sex: Male

DRUGS (1)
  1. NITROSTAT [Suspect]
     Active Substance: NITROGLYCERIN
     Indication: CHEST PAIN
     Dosage: 0.4 MG, AS NEEDED (ONE TABLET SUBLINGUALLY AT EVERY 5 MINUTES)
     Route: 060

REACTIONS (3)
  - Drug ineffective [Unknown]
  - Paraesthesia oral [Unknown]
  - Product solubility abnormal [Unknown]
